FAERS Safety Report 8111134-2 (Version None)
Quarter: 2012Q1

REPORT INFORMATION
  Report Type: 
  Country: None (occurrence: None)
  Receive Date: 20120203
  Receipt Date: 20110509
  Transmission Date: 20120608
  Serious: No
  Sender: FDA-Public Use
  Company Number: US-GLAXOSMITHKLINE-A0926603A

PATIENT
  Age: 24 Year
  Sex: Female

DRUGS (4)
  1. DIASTAT [Concomitant]
  2. LAMOTRIGINE [Suspect]
     Indication: PRODUCT USED FOR UNKNOWN INDICATION
     Dosage: 450 PER DAY
     Route: 048
  3. BENZODIAZEPINE [Concomitant]
  4. KEPPRA [Concomitant]

REACTIONS (1)
  - DRUG SCREEN POSITIVE [None]
